FAERS Safety Report 12350200 (Version 1)
Quarter: 2016Q2

REPORT INFORMATION
  Report Type: Report from Study
  Country: US (occurrence: US)
  Receive Date: 20160510
  Receipt Date: 20160510
  Transmission Date: 20160815
  Serious: Yes (Hospitalization, Other)
  Sender: FDA-Public Use
  Company Number: US-AMGEN-USASL2016056988

PATIENT
  Sex: Female

DRUGS (1)
  1. PROLIA [Suspect]
     Active Substance: DENOSUMAB
     Indication: PRODUCT USED FOR UNKNOWN INDICATION
     Dosage: UNK
     Route: 065
     Dates: start: 2014

REACTIONS (5)
  - Blood calcium decreased [Unknown]
  - Lower limb fracture [Not Recovered/Not Resolved]
  - Blood parathyroid hormone abnormal [Unknown]
  - Multiple fractures [Not Recovered/Not Resolved]
  - Fracture delayed union [Unknown]

NARRATIVE: CASE EVENT DATE: 201509
